FAERS Safety Report 9203181 (Version 1)
Quarter: 2013Q1

REPORT INFORMATION
  Report Type: Spontaneous
  Country: US (occurrence: None)
  Receive Date: 20130329
  Receipt Date: 20130329
  Transmission Date: 20140127
  Serious: Yes (Death)
  Sender: FDA-Public Use
  Company Number: 2013-CA-0002

PATIENT
  Age: 53 Year
  Sex: Female

DRUGS (13)
  1. ABSTRAL [Suspect]
     Indication: CANCER PAIN
     Dosage: 3 MONTH 1 WEEK SUBLINGUAL
     Route: 060
     Dates: start: 20121014, end: 20130121
  2. FENTANYL [Suspect]
     Indication: CANCER PAIN
     Route: 062
     Dates: start: 20130131, end: 20130305
  3. FENTANYL [Suspect]
     Indication: CANCER PAIN
     Dosage: 50 MCG/HR + BOLUS 100MCG (7/DAY)  INTRAVENOUS
     Dates: start: 20130205, end: 20130221
  4. DEXAMETHASONE (DEXAMETHASONE) [Concomitant]
  5. PANTOPRAZOLE [Concomitant]
  6. PROZAC (FLUOXETINE HYDROCHLORIDE) [Concomitant]
  7. CLONAZEPAM [Concomitant]
  8. LASIX (FUROSEMIDE) [Concomitant]
  9. SPIRONOLACTONE (SPIRONOLACTONE) [Concomitant]
  10. LAX-A-DAY (POLYETHYLENE GLYCOL) [Concomitant]
  11. SANDOSTATIN (OCTREOTIDE) [Concomitant]
  12. MEXERAN (METOCLOPRAMIDE HYDROCHLORIDE) [Concomitant]
  13. ANCEF (CEFAZOLIN) [Concomitant]

REACTIONS (1)
  - Drug ineffective [None]
